FAERS Safety Report 10095920 (Version 2)
Quarter: 2014Q2

REPORT INFORMATION
  Report Type: Spontaneous
  Country: BR (occurrence: BR)
  Receive Date: 20140422
  Receipt Date: 20140507
  Transmission Date: 20141212
  Serious: Yes (Other)
  Sender: FDA-Public Use
  Company Number: BR-ASTRAZENECA-2014SE26810

PATIENT
  Age: 85 Year
  Sex: Male

DRUGS (2)
  1. CRESTOR [Suspect]
     Indication: BLOOD CHOLESTEROL INCREASED
     Route: 048
     Dates: start: 2011, end: 20140403
  2. IMOVANE [Concomitant]
     Indication: INSOMNIA

REACTIONS (3)
  - Amylase increased [Recovered/Resolved]
  - Renal cyst [Unknown]
  - Hepatic cyst [Unknown]
